FAERS Safety Report 7927742-5 (Version None)
Quarter: 2011Q4

REPORT INFORMATION
  Report Type: 
  Country: None (occurrence: None)
  Receive Date: 20111118
  Receipt Date: 20110426
  Transmission Date: 20120403
  Serious: No
  Sender: FDA-Public Use
  Company Number: US-BRISTOL-MYERS SQUIBB COMPANY-15640527

PATIENT
  Sex: Female

DRUGS (5)
  1. NORVASC [Concomitant]
  2. LIPITOR [Concomitant]
  3. DEMADEX [Concomitant]
  4. DIOVAN [Concomitant]
  5. GLUCOPHAGE XR [Suspect]

REACTIONS (1)
  - ABDOMINAL PAIN UPPER [None]
